FAERS Safety Report 10642936 (Version 1)
Quarter: 2014Q4

REPORT INFORMATION
  Report Type: Spontaneous
  Country: US (occurrence: None)
  Receive Date: 20141209
  Receipt Date: 20141209
  Transmission Date: 20150529
  Serious: No
  Sender: FDA-Public Use
  Company Number: None

PATIENT

DRUGS (1)
  1. NYMALIZE [Suspect]
     Active Substance: NIMODIPINE
     Dosage: 60 MG/20 ML, ONE 20 ML UNIT-DOSE
     Route: 048

REACTIONS (3)
  - Syringe issue [None]
  - Circumstance or information capable of leading to medication error [None]
  - Product label issue [None]
